FAERS Safety Report 6364077-9 (Version None)
Quarter: 2009Q3

REPORT INFORMATION
  Report Type: 
  Country: None (occurrence: None)
  Receive Date: 20090919
  Receipt Date: 20090713
  Transmission Date: 20100115
  Serious: No
  Sender: FDA-Public Use
  Company Number: US-ABBOTT-09P-163-0585213-00

PATIENT
  Sex: Female
  Weight: 81.72 kg

DRUGS (11)
  1. HUMIRA [Suspect]
     Indication: CROHN'S DISEASE
     Route: 058
     Dates: start: 20090601, end: 20090601
  2. HUMIRA [Suspect]
     Route: 058
     Dates: start: 20090615, end: 20090615
  3. HUMIRA [Suspect]
     Route: 058
     Dates: start: 20090629
  4. SYNTHROID [Concomitant]
     Indication: HYPOTHYROIDISM
  5. ATENOLOL [Concomitant]
     Indication: HYPERTENSION
  6. PLAVIX [Concomitant]
     Indication: ANGINA PECTORIS
  7. GLIPIZIDE [Concomitant]
     Indication: BLOOD GLUCOSE INCREASED
  8. METFORMIN HCL [Concomitant]
     Indication: BLOOD GLUCOSE INCREASED
  9. ASPIRIN [Concomitant]
     Indication: CARDIAC DISORDER
  10. CENTRUM [Concomitant]
     Indication: DRUG USE FOR UNKNOWN INDICATION
  11. CRESTOR [Concomitant]
     Indication: BLOOD CHOLESTEROL INCREASED

REACTIONS (3)
  - CHEST PAIN [None]
  - RASH [None]
  - SWELLING FACE [None]
